FAERS Safety Report 8738733 (Version 2)
Quarter: 2018Q4

REPORT INFORMATION
  Report Type: Spontaneous
  Country: FR (occurrence: FR)
  Receive Date: 20120823
  Receipt Date: 20180918
  Transmission Date: 20190205
  Serious: Yes (Hospitalization)
  Sender: FDA-Public Use
  Company Number: FR-PFIZER INC-2012201674

PATIENT
  Age: 60 Year
  Sex: Male
  Weight: 85 kg

DRUGS (4)
  1. TRIFLUCAN [Suspect]
     Active Substance: FLUCONAZOLE
     Dosage: 400 MG, 1X/DAY
     Route: 042
     Dates: start: 20120720, end: 20120725
  2. BETADINE [Suspect]
     Active Substance: POVIDONE-IODINE
     Dosage: 2 L, 1X/DAY
     Route: 003
     Dates: start: 20120721, end: 20120726
  3. BETADINE [Suspect]
     Active Substance: POVIDONE-IODINE
     Indication: ANTIBIOTIC THERAPY
     Dosage: 1 L, 1X/DAY
     Route: 003
     Dates: start: 20120720, end: 20120720
  4. IMOVANE [Suspect]
     Active Substance: ZOPICLONE
     Dosage: 7.5 MG, 1X/DAY - 1DF DAILY
     Route: 048
     Dates: start: 20120722, end: 20120725

REACTIONS (1)
  - Toxic skin eruption [Recovering/Resolving]

NARRATIVE: CASE EVENT DATE: 20120722
